FAERS Safety Report 9760132 (Version 1)
Quarter: 2013Q4

REPORT INFORMATION
  Report Type: Spontaneous
  Country: US (occurrence: US)
  Receive Date: 20131216
  Receipt Date: 20131216
  Transmission Date: 20140711
  Serious: No
  Sender: FDA-Public Use
  Company Number: US-PFIZER INC-2013359676

PATIENT
  Age: 53 Year
  Sex: Female
  Weight: 136 kg

DRUGS (2)
  1. LYRICA [Suspect]
     Indication: FIBROMYALGIA
     Dosage: UNK, 2X/DAY
     Route: 048
     Dates: start: 201311, end: 201312
  2. LISINOPRIL [Concomitant]
     Indication: HYPERTENSION
     Dosage: UNK

REACTIONS (1)
  - Pain [Unknown]
